FAERS Safety Report 12403672 (Version 2)
Quarter: 2016Q3

REPORT INFORMATION
  Report Type: Spontaneous
  Country: IT (occurrence: IT)
  Receive Date: 20160525
  Receipt Date: 20160705
  Transmission Date: 20161109
  Serious: Yes (Hospitalization)
  Sender: FDA-Public Use
  Company Number: PHHY2016IT070373

PATIENT
  Age: 19 Year
  Sex: Male

DRUGS (2)
  1. TEGRETOL [Suspect]
     Active Substance: CARBAMAZEPINE
     Indication: EPILEPSY
     Dosage: 1200 MG, QD
     Route: 048
     Dates: start: 20151221, end: 20160125
  2. DEPAKIN [Concomitant]
     Active Substance: VALPROATE SODIUM
     Indication: PRODUCT USED FOR UNKNOWN INDICATION
     Dosage: 100 MG, UNK
     Route: 048
     Dates: start: 20160122, end: 20160126

REACTIONS (5)
  - Hepatomegaly [Unknown]
  - Rash [Recovered/Resolved]
  - Transaminases increased [Recovered/Resolved]
  - Hepatic steatosis [Unknown]
  - Toxic skin eruption [Unknown]

NARRATIVE: CASE EVENT DATE: 20160122
